FAERS Safety Report 22072286 (Version 5)
Quarter: 2024Q4

REPORT INFORMATION
  Report Type: Report from Study
  Country: US (occurrence: US)
  Receive Date: 20230308
  Receipt Date: 20241211
  Transmission Date: 20250115
  Serious: No
  Sender: GLAXOSMITHKLINE
  Company Number: US-GLAXOSMITHKLINE-US2023AMR035286

PATIENT

DRUGS (5)
  1. NIRAPARIB [Suspect]
     Active Substance: NIRAPARIB
     Indication: Breast cancer female
     Dosage: UNK
  2. NIRAPARIB [Suspect]
     Active Substance: NIRAPARIB
     Indication: Breast cancer
  3. NIRAPARIB [Suspect]
     Active Substance: NIRAPARIB
     Indication: Gastrointestinal inflammation
  4. NIRAPARIB [Suspect]
     Active Substance: NIRAPARIB
     Indication: Colitis
  5. NIRAPARIB [Suspect]
     Active Substance: NIRAPARIB

REACTIONS (1)
  - Off label use [Unknown]
